FAERS Safety Report 8909496 (Version 7)
Quarter: 2013Q1

REPORT INFORMATION
  Report Type: Spontaneous
  Country: US (occurrence: None)
  Receive Date: 20121109
  Receipt Date: 20130219
  Transmission Date: 20140127
  Serious: Yes (Hospitalization, Other)
  Sender: FDA-Public Use
  Company Number: 2012-002397

PATIENT
  Age: 62 Year
  Sex: Female
  Weight: 65.9 kg

DRUGS (17)
  1. ACTONEL [Suspect]
     Indication: OSTEOPOROSIS
     Dosage: ONCE WEEKLY,
     Route: 048
     Dates: start: 200906, end: 201010
  2. FOSAMAX PLUS D [Suspect]
     Indication: OSTEOPOROSIS
     Route: 048
     Dates: start: 20060504, end: 20080304
  3. FOSAMAX [Suspect]
     Indication: OSTEOPOROSIS
     Route: 048
     Dates: start: 20080304, end: 20081215
  4. FOSAMAX [Suspect]
     Indication: OSTEOPOROSIS PROPHYLAXIS
     Route: 048
     Dates: start: 20080304, end: 20081215
  5. ALENDRONATE [Suspect]
     Indication: OSTEOPOROSIS
     Route: 048
     Dates: start: 20081215, end: 20100811
  6. ALENDRONATE [Suspect]
     Route: 048
     Dates: start: 20081215, end: 20100811
  7. ACTIVELLA (ESTRADIOL, NORETHISTERONE ACETATE) [Concomitant]
  8. IMITREX  /01044801/ (SUMATRIPTAN) [Concomitant]
  9. HYDROCODONE BITARTRATE AND ACETAMINOPHEN (HYDROCODONE BITARTRATE, PARACETAMOL) [Concomitant]
  10. LIPITOR (ATORVASTATIN CALCIUM) [Concomitant]
  11. ZELNORM (TEGASEROD MALEATE) [Concomitant]
  12. PENLAC (CICLOPIROX) [Concomitant]
  13. FLUOXETINE (FLUOXETINE) [Concomitant]
  14. RYZOLT (TRAMADOL HYDROCHLORIDE) [Concomitant]
  15. ACTONEL [Suspect]
     Route: 048
     Dates: start: 20020926, end: 2003
  16. BEXTRA (VALDECOXIB) [Concomitant]
  17. PREMPRO (ESTROGENS CONJUGATED, MEDROXYPROGESTERONE ACETATE) [Concomitant]

REACTIONS (21)
  - Femur fracture [None]
  - Fall [None]
  - Fracture displacement [None]
  - Bone disorder [None]
  - Low turnover osteopathy [None]
  - Stress fracture [None]
  - Pathological fracture [None]
  - Product substitution issue [None]
  - Perineurial cyst [None]
  - Micturition urgency [None]
  - Lumbar radiculopathy [None]
  - Tendonitis [None]
  - Arthropathy [None]
  - Joint injury [None]
  - Tooth fracture [None]
  - Blood pressure increased [None]
  - Pain [None]
  - Tendonitis [None]
  - Patellofemoral pain syndrome [None]
  - Depression [None]
  - Pain in extremity [None]
